FAERS Safety Report 7212213-4 (Version None)
Quarter: 2010Q4

REPORT INFORMATION
  Report Type: 
  Country: None (occurrence: None)
  Receive Date: 20101227
  Receipt Date: 20101220
  Transmission Date: 20110411
  Serious: Yes (Life-Threatening)
  Sender: FDA-Public Use
  Company Number: DKLU1062259

PATIENT
  Age: 18 Month
  Sex: Male
  Weight: 8 kg

DRUGS (3)
  1. COSMEGEN [Suspect]
     Indication: FIBROSARCOMA
     Dosage: 0.1 MG MILLIGRAM(S), 1 IN 1 D, INTRAVENOUS (NOT OTHERWISE SPECIFIED)
     Route: 042
     Dates: start: 20100427, end: 20100501
  2. ENDOXAN (CYCLOPHOSPHAMIDE) [Suspect]
     Indication: FIBROSARCOMA
  3. ONCOVIN [Concomitant]

REACTIONS (3)
  - DISSEMINATED INTRAVASCULAR COAGULATION [None]
  - FIBROSARCOMA [None]
  - MALIGNANT NEOPLASM PROGRESSION [None]
